FAERS Safety Report 25128611 (Version 1)
Quarter: 2025Q1

REPORT INFORMATION
  Report Type: Other
  Country: TR (occurrence: TR)
  Receive Date: 20250327
  Receipt Date: 20250327
  Transmission Date: 20250408
  Serious: Yes (Death, Hospitalization)
  Sender: ANI
  Company Number: TR-ANIPHARMA-016139

PATIENT
  Age: 29 Year
  Sex: Female

DRUGS (3)
  1. CYCLOPHOSPHAMIDE [Suspect]
     Active Substance: CYCLOPHOSPHAMIDE
     Indication: NUT midline carcinoma
  2. VINCRISTINE [Concomitant]
     Active Substance: VINCRISTINE
     Indication: NUT midline carcinoma
  3. DOXORUBICIN [Concomitant]
     Active Substance: DOXORUBICIN
     Indication: NUT midline carcinoma

REACTIONS (1)
  - Drug ineffective [Fatal]
